FAERS Safety Report 8868359 (Version 1)
Quarter: 2012Q4

REPORT INFORMATION
  Report Type: 
  Country: US (occurrence: US)
  Receive Date: 20121025
  Receipt Date: 20121025
  Transmission Date: 20130627
  Serious: No
  Sender: FDA-Public Use
  Company Number: US-AMGEN-USASP2012019655

PATIENT
  Age: 49 Year
  Sex: Female

DRUGS (6)
  1. ENBREL [Suspect]
     Indication: RHEUMATOID ARTHRITIS
     Dosage: 50 mg, qwk
     Dates: start: 201202
  2. PREDNISONE [Concomitant]
     Dosage: UNK
  3. COMTREX                            /00959901/ [Concomitant]
     Dosage: UNK
  4. HYDROXYCHLOROQUINE [Concomitant]
     Dosage: UNK
  5. SULFASALAZINE [Concomitant]
     Dosage: UNK
  6. ALENDRONATE [Concomitant]
     Dosage: UNK

REACTIONS (3)
  - Injection site erythema [Not Recovered/Not Resolved]
  - Injection site swelling [Not Recovered/Not Resolved]
  - Injection site urticaria [Not Recovered/Not Resolved]
